FAERS Safety Report 8231084-0 (Version None)
Quarter: 2012Q1

REPORT INFORMATION
  Report Type: 
  Country: None (occurrence: None)
  Receive Date: 20120322
  Receipt Date: 20120322
  Transmission Date: 20120608
  Serious: Yes (Hospitalization)
  Sender: FDA-Public Use
  Company Number: None

PATIENT
  Sex: Female
  Weight: 77.11 kg

DRUGS (1)
  1. NARDIL [Suspect]
     Indication: MAJOR DEPRESSION
     Dosage: 90 MG
     Route: 048
     Dates: start: 20031005, end: 20120321

REACTIONS (11)
  - FATIGUE [None]
  - AMNESIA [None]
  - ANXIETY [None]
  - DIZZINESS [None]
  - DEPRESSION [None]
  - HEADACHE [None]
  - LOSS OF EMPLOYMENT [None]
  - PRODUCT QUALITY ISSUE [None]
  - ASTHENIA [None]
  - WEIGHT INCREASED [None]
  - HYPERHIDROSIS [None]
